FAERS Safety Report 7325964 (Version 3)
Quarter: 2016Q1

REPORT INFORMATION
  Report Type: Report from Study
  Country: JP (occurrence: JP)
  Receive Date: 20100319
  Receipt Date: 20160311
  Transmission Date: 20160526
  Serious: Yes (Hospitalization, Other)
  Sender: FDA-Public Use
  Company Number: PHHY2009JP12976

PATIENT
  Age: 70 Year
  Sex: Female
  Weight: 56 kg

DRUGS (39)
  1. BONZOL [Suspect]
     Active Substance: LANSOPRAZOLE
     Indication: APLASTIC ANAEMIA
     Dosage: 400 MG, QD
     Route: 048
     Dates: start: 20080728, end: 20080811
  2. GLAKAY [Concomitant]
     Active Substance: MENATETRENONE
     Dosage: 45 MG, UNK
     Route: 048
     Dates: end: 20090304
  3. PREDONINE [Concomitant]
     Active Substance: PREDNISOLONE\PREDNISOLONE ACETATE\PREDNISOLONE SODIUM SUCCINATE
     Dosage: 10 MG, UNK
     Route: 048
     Dates: end: 20090208
  4. GASTER [Concomitant]
     Active Substance: FAMOTIDINE
     Dosage: 20 MG, UNK
     Route: 048
     Dates: end: 20090212
  5. DAIKENCHUTO [Concomitant]
     Active Substance: HERBALS
     Indication: PRODUCT USED FOR UNKNOWN INDICATION
     Dosage: 15 G, UNK
     Route: 048
     Dates: start: 20090213, end: 20090222
  6. GLYCYRON [Concomitant]
     Active Substance: AMMONIUM GLYCYRRHIZATE\GLYCINE\METHIONINE
     Indication: PROPHYLAXIS
     Dosage: 150 MG, UNK
     Route: 048
     Dates: start: 20080728, end: 20090127
  7. GLYCYRON [Concomitant]
     Active Substance: AMMONIUM GLYCYRRHIZATE\GLYCINE\METHIONINE
     Dosage: 150 MG, UNK
     Route: 048
  8. MAGNESIUM OXIDE. [Concomitant]
     Active Substance: MAGNESIUM OXIDE
     Indication: PROPHYLAXIS
     Dosage: 1.5 G, UNK
     Route: 048
     Dates: start: 20090213, end: 20090222
  9. OMEPRAL [Concomitant]
     Active Substance: OMEPRAZOLE
     Indication: PROPHYLAXIS
     Route: 048
     Dates: start: 20090209
  10. ICL670A [Suspect]
     Active Substance: DEFERASIROX
     Indication: APLASTIC ANAEMIA
     Dosage: 500 MG, QD
     Route: 048
     Dates: start: 20080728, end: 20090127
  11. PREDONINE [Concomitant]
     Active Substance: PREDNISOLONE\PREDNISOLONE ACETATE\PREDNISOLONE SODIUM SUCCINATE
     Indication: APLASTIC ANAEMIA
     Dosage: 10 MG, UNK
     Route: 048
     Dates: start: 20080728, end: 20090127
  12. PREDONINE [Concomitant]
     Active Substance: PREDNISOLONE\PREDNISOLONE ACETATE\PREDNISOLONE SODIUM SUCCINATE
     Dosage: 10 MG, UNK
     Dates: start: 20090209, end: 20090402
  13. POLARAMINE [Concomitant]
     Active Substance: DEXCHLORPHENIRAMINE MALEATE
     Indication: PROPHYLAXIS
     Dosage: 5 MG, UNK
     Route: 065
     Dates: start: 20090211, end: 20090615
  14. VITAMEDIN INTRAVENOUS [Concomitant]
     Active Substance: CYANOCOBALAMIN\PYRIDOXINE HYDROCHLORIDE\THIAMINE
     Indication: PROPHYLAXIS
     Dosage: 1 DF, UNK
     Route: 042
     Dates: start: 20090329, end: 20090405
  15. ADONA [Concomitant]
     Active Substance: CARBAZOCHROME SODIUM SULFONATE
     Indication: APLASTIC ANAEMIA
     Dosage: 90 MG, UNK
     Route: 048
     Dates: start: 20080728, end: 20090127
  16. GLYCYRON [Concomitant]
     Active Substance: AMMONIUM GLYCYRRHIZATE\GLYCINE\METHIONINE
     Dosage: 150 MG, UNK
     Route: 048
  17. CRAVIT [Concomitant]
     Active Substance: LEVOFLOXACIN
     Route: 048
     Dates: start: 20090417
  18. PLATELETS [Concomitant]
     Active Substance: HUMAN PLATELET, ALLOGENIC
     Indication: PRODUCT USED FOR UNKNOWN INDICATION
     Route: 065
  19. ADONA [Concomitant]
     Active Substance: CARBAZOCHROME SODIUM SULFONATE
     Indication: JEJUNAL ULCER
     Dosage: 90 MG, UNK
     Route: 048
     Dates: start: 20090209, end: 20090304
  20. ADONA [Concomitant]
     Active Substance: CARBAZOCHROME SODIUM SULFONATE
     Indication: ENTEROCOLITIS
     Route: 048
     Dates: start: 20090615
  21. GASTER [Concomitant]
     Active Substance: FAMOTIDINE
     Indication: PROPHYLAXIS
     Dosage: 20 MG, UNK
     Route: 048
     Dates: start: 20080728, end: 20090127
  22. CATLEP [Concomitant]
     Active Substance: INDOMETHACIN
     Indication: PRODUCT USED FOR UNKNOWN INDICATION
     Route: 062
     Dates: start: 20080728, end: 20090727
  23. MUCOSTA [Concomitant]
     Active Substance: REBAMIPIDE
     Indication: PROPHYLAXIS
     Dosage: 300 MG, UNK
     Route: 048
     Dates: start: 20090205, end: 20090209
  24. SULPERAZON [Concomitant]
     Active Substance: CEFOPERAZONE SODIUM\SULBACTAM SODIUM
     Indication: PRODUCT USED FOR UNKNOWN INDICATION
     Route: 065
     Dates: start: 20090323, end: 20090402
  25. OMEPRAL [Concomitant]
     Active Substance: OMEPRAZOLE
     Indication: JEJUNAL ULCER
     Dosage: 20 MG, UNK
     Route: 048
     Dates: start: 20090213, end: 20090727
  26. BONALON [Suspect]
     Active Substance: ALENDRONATE SODIUM
     Indication: PROPHYLAXIS
     Dosage: 35 MG, QD
     Route: 048
     Dates: start: 20080728, end: 20090214
  27. DESFERAL [Concomitant]
     Active Substance: DEFEROXAMINE MESYLATE
     Indication: PRODUCT USED FOR UNKNOWN INDICATION
     Dosage: 1000 MG, UNK
     Route: 030
     Dates: start: 20080428, end: 20080707
  28. ADONA [Concomitant]
     Active Substance: CARBAZOCHROME SODIUM SULFONATE
     Indication: INTESTINAL HAEMORRHAGE
     Dosage: UNK
     Route: 065
     Dates: start: 20090426
  29. ADONA [Concomitant]
     Active Substance: CARBAZOCHROME SODIUM SULFONATE
     Indication: GINGIVAL BLEEDING
  30. GLYCYRON [Concomitant]
     Active Substance: AMMONIUM GLYCYRRHIZATE\GLYCINE\METHIONINE
     Dosage: 150 MG, UNK
     Route: 048
     Dates: end: 20090425
  31. CRAVIT [Concomitant]
     Active Substance: LEVOFLOXACIN
     Indication: PROPHYLAXIS
     Dosage: 300 MG, UNK
     Route: 048
     Dates: start: 20080728, end: 20090127
  32. STRONG NEO-MINOPHAGEN C [Concomitant]
     Active Substance: AMMONIUM GLYCYRRHIZATE\CYSTEINE HYDROCHLORIDE\GLYCINE
     Indication: PRODUCT USED FOR UNKNOWN INDICATION
     Route: 065
     Dates: start: 20090226
  33. STRONG NEO-MINOPHAGEN C [Concomitant]
     Active Substance: AMMONIUM GLYCYRRHIZATE\CYSTEINE HYDROCHLORIDE\GLYCINE
     Dosage: UNK
     Route: 065
     Dates: start: 20090419
  34. LAXOBERON [Concomitant]
     Active Substance: SODIUM PICOSULFATE
     Indication: PROPHYLAXIS
     Route: 048
     Dates: start: 20100213, end: 20100213
  35. OMEPRAL [Concomitant]
     Active Substance: OMEPRAZOLE
     Dosage: 40 MG, UNK
     Route: 048
     Dates: start: 20090307, end: 20090402
  36. GLAKAY [Concomitant]
     Active Substance: MENATETRENONE
     Indication: PROPHYLAXIS
     Dosage: 45 MG, UNK
     Route: 048
     Dates: start: 20080728, end: 20090127
  37. STRONG NEO-MINOPHAGEN C [Concomitant]
     Active Substance: AMMONIUM GLYCYRRHIZATE\CYSTEINE HYDROCHLORIDE\GLYCINE
     Dosage: UNK
     Route: 065
     Dates: start: 20090410
  38. METOPROLOL TARTRATE. [Concomitant]
     Active Substance: METOPROLOL TARTRATE
     Indication: PROPHYLAXIS
     Dosage: 2 ML, UNK
     Route: 065
     Dates: start: 20090401, end: 20090405
  39. BIOFERMIN R [Concomitant]
     Active Substance: BACILLUS SUBTILIS\LACTOBACILLUS ACIDOPHILUS\STREPTOCOCCUS FAECAIS
     Indication: PROPHYLAXIS
     Route: 065
     Dates: start: 20090426, end: 20090727

REACTIONS (45)
  - Jejunal ulcer [Recovering/Resolving]
  - Gingival disorder [Recovered/Resolved]
  - Rash [Recovered/Resolved]
  - Injection site erythema [Recovered/Resolved]
  - Gastroenteritis [Recovered/Resolved]
  - Periarthritis [Not Recovered/Not Resolved]
  - Abdominal pain [Unknown]
  - Pyrexia [Recovered/Resolved]
  - Osteomyelitis [Unknown]
  - Malabsorption [Unknown]
  - Fungal infection [Recovered/Resolved]
  - Phlebitis [Recovered/Resolved]
  - Injection site swelling [Recovered/Resolved]
  - Abdominal discomfort [Unknown]
  - Urinary tract infection [Recovered/Resolved]
  - Urine abnormality [Recovered/Resolved]
  - Pollakiuria [Unknown]
  - Oedema peripheral [Recovered/Resolved]
  - Bursitis [Recovered/Resolved]
  - Pyrexia [Recovered/Resolved]
  - Intestinal haemorrhage [Unknown]
  - Abdominal pain upper [Recovered/Resolved]
  - Paroxysmal nocturnal haemoglobinuria [Not Recovered/Not Resolved]
  - Renal abscess [Recovering/Resolving]
  - Enteritis [Unknown]
  - Erythema [Recovered/Resolved]
  - Enterocolitis [Recovering/Resolving]
  - Abdominal rebound tenderness [Unknown]
  - Vomiting [Unknown]
  - Tinea pedis [Recovered/Resolved]
  - Pyrexia [Unknown]
  - Gingival bleeding [Recovering/Resolving]
  - Haematochezia [Recovered/Resolved]
  - Gamma-glutamyltransferase increased [Recovered/Resolved]
  - Injection site pain [Recovered/Resolved]
  - Ulcer [Recovered/Resolved]
  - Cholecystitis [Recovering/Resolving]
  - Purpura [Recovering/Resolving]
  - Peritonitis [Recovered/Resolved]
  - Hepatic enzyme increased [Not Recovered/Not Resolved]
  - Abdominal pain [Recovered/Resolved]
  - Hypokalaemia [Recovered/Resolved]
  - Haemoglobin decreased [Unknown]
  - Peritonitis [Recovered/Resolved]
  - Musculoskeletal pain [Unknown]

NARRATIVE: CASE EVENT DATE: 20080811
